FAERS Safety Report 25699898 (Version 1)
Quarter: 2025Q3

REPORT INFORMATION
  Report Type: Spontaneous
  Country: CN (occurrence: CN)
  Receive Date: 20250819
  Receipt Date: 20250819
  Transmission Date: 20251020
  Serious: Yes (Life-Threatening, Hospitalization, Other)
  Sender: RANBAXY
  Company Number: CN-SUN PHARMACEUTICAL INDUSTRIES INC-2025R1-523153

PATIENT
  Age: 32 Year
  Sex: Male

DRUGS (2)
  1. PENTAZOCINE [Interacting]
     Active Substance: PENTAZOCINE
     Indication: Pain
     Dosage: 30 MG INTRAMUSCULARLY, 3 TIMES DAILY
     Route: 042
  2. LINEZOLID [Interacting]
     Active Substance: LINEZOLID
     Indication: Infection
     Route: 042

REACTIONS (2)
  - Serotonin syndrome [Recovering/Resolving]
  - Drug interaction [Unknown]
